FAERS Safety Report 20821810 (Version 1)
Quarter: 2022Q2

REPORT INFORMATION
  Report Type: Spontaneous
  Country: CN (occurrence: CN)
  Receive Date: 20220512
  Receipt Date: 20220512
  Transmission Date: 20220720
  Serious: Yes (Life-Threatening)
  Sender: FDA-Public Use
  Company Number: CN-PFIZER INC-202200679293

PATIENT
  Age: 87 Year
  Sex: Male
  Weight: 88 kg

DRUGS (3)
  1. LINEZOLID [Suspect]
     Active Substance: LINEZOLID
     Indication: Infection
     Dosage: 0.6 G, 2X/DAY
     Route: 048
     Dates: start: 20220423, end: 20220502
  2. PIPERACILLIN SODIUM\TAZOBACTAM SODIUM [Suspect]
     Active Substance: PIPERACILLIN SODIUM\TAZOBACTAM SODIUM
     Indication: Infection
     Dosage: 4.5 G, 3X/DAY
     Route: 041
     Dates: start: 20220415, end: 20220503
  3. HEPARIN SODIUM [Concomitant]
     Active Substance: HEPARIN SODIUM
     Indication: Cerebral haemorrhage
     Dosage: 5000 IU, 1X/DAY
     Route: 058
     Dates: start: 20220422, end: 20220502

REACTIONS (2)
  - Platelet count decreased [Recovering/Resolving]
  - Chromaturia [Recovered/Resolved]

NARRATIVE: CASE EVENT DATE: 20220502
